FAERS Safety Report 16473422 (Version 2)
Quarter: 2021Q3

REPORT INFORMATION
  Report Type: Spontaneous
  Country: US (occurrence: US)
  Receive Date: 20190625
  Receipt Date: 20210823
  Transmission Date: 20211014
  Serious: Yes (Other)
  Sender: FDA-Public Use
  Company Number: US-PFIZER INC-2017281572

PATIENT
  Age: 51 Year
  Sex: Female
  Weight: 66.21 kg

DRUGS (2)
  1. LYRICA [Suspect]
     Active Substance: PREGABALIN
     Indication: DIABETIC NEUROPATHY
     Dosage: 150 MG, 2X/DAY
     Route: 048
  2. LYRICA [Suspect]
     Active Substance: PREGABALIN
     Indication: TYPE 2 DIABETES MELLITUS
     Dosage: 200 MG, 2X/DAY

REACTIONS (6)
  - Urinary tract infection [Unknown]
  - Bronchitis [Unknown]
  - Off label use [Unknown]
  - Dyspnoea [Unknown]
  - Dehydration [Unknown]
  - Viral infection [Unknown]

NARRATIVE: CASE EVENT DATE: 20190609
